FAERS Safety Report 5264054-5 (Version None)
Quarter: 2007Q1

REPORT INFORMATION
  Report Type: 
  Country: None (occurrence: None)
  Receive Date: 20070313
  Receipt Date: 20070228
  Transmission Date: 20070707
  Serious: Yes (Hospitalization)
  Sender: FDA-Public Use
  Company Number: FI-ELI_LILLY_AND_COMPANY-FI200703000053

PATIENT
  Age: 49 Year
  Sex: Female

DRUGS (6)
  1. CYMBALTA [Suspect]
     Indication: DEPRESSION
     Dosage: 60 MG, DAILY (1/D)
     Route: 048
     Dates: start: 20061219, end: 20070207
  2. SYMBICORT [Concomitant]
     Dosage: UNK UNK, 2/D
     Route: 065
  3. SINGULAIR /SCH/ [Concomitant]
     Dosage: 10 MG, DAILY (1/D)
     Route: 048
  4. VENTOLIN DISKUS /SCH/ [Concomitant]
     Route: 055
  5. LEVOZIN [Concomitant]
     Dosage: 5 MG, DAILY (1/D)
     Route: 048
  6. TENOX [Concomitant]
     Dosage: 10 MG, DAILY (1/D)
     Route: 048

REACTIONS (6)
  - ABDOMINAL PAIN [None]
  - ALANINE AMINOTRANSFERASE INCREASED [None]
  - GAMMA-GLUTAMYLTRANSFERASE INCREASED [None]
  - NIGHT SWEATS [None]
  - NIGHTMARE [None]
  - POLLAKIURIA [None]
